FAERS Safety Report 8048577-1 (Version None)
Quarter: 2012Q1

REPORT INFORMATION
  Report Type: 
  Country: None (occurrence: None)
  Receive Date: 20120117
  Receipt Date: 20120111
  Transmission Date: 20120608
  Serious: Yes (Other)
  Sender: FDA-Public Use
  Company Number: US-SANOFI-AVENTIS-2011SA078195

PATIENT
  Age: 67 Year
  Sex: Female
  Weight: 190 kg

DRUGS (6)
  1. APIDRA [Suspect]
     Indication: TYPE 2 DIABETES MELLITUS
     Dosage: 3-6 UNITS BEFORE MEALS, TID
     Route: 058
     Dates: start: 20110601
  2. SOLOSTAR [Suspect]
  3. SOLOSTAR [Suspect]
     Indication: TYPE 2 DIABETES MELLITUS
     Dates: start: 20110601
  4. LANTUS [Suspect]
     Indication: TYPE 2 DIABETES MELLITUS
     Route: 058
  5. APIDRA [Suspect]
     Dosage: 20-24 UNITS
     Route: 058
     Dates: start: 20111101, end: 20111101
  6. PERCOCET [Concomitant]
     Dosage: 1 PILL Q 4-6 HRS
     Dates: start: 20111110

REACTIONS (2)
  - SHOULDER OPERATION [None]
  - WRONG DRUG ADMINISTERED [None]
